FAERS Safety Report 17454238 (Version 1)
Quarter: 2020Q1

REPORT INFORMATION
  Report Type: Spontaneous
  Country: US (occurrence: US)
  Receive Date: 20200211
  Receipt Date: 20200211
  Transmission Date: 20200409
  Serious: No
  Sender: FDA-Public Use
  Company Number: None

PATIENT
  Age: 41 Year
  Sex: Male

DRUGS (2)
  1. TEMOZOLOMIDE 20MG [Concomitant]
     Active Substance: TEMOZOLOMIDE
  2. TEMODAR [Suspect]
     Active Substance: TEMOZOLOMIDE
     Route: 048
     Dates: start: 202001

REACTIONS (1)
  - Product administration error [None]

NARRATIVE: CASE EVENT DATE: 20200211
